FAERS Safety Report 13659274 (Version 1)
Quarter: 2017Q2

REPORT INFORMATION
  Report Type: Spontaneous
  Country: US (occurrence: US)
  Receive Date: 20170616
  Receipt Date: 20170616
  Transmission Date: 20170830
  Serious: Yes (Hospitalization)
  Sender: FDA-Public Use
  Company Number: None

PATIENT
  Age: 90 Year
  Sex: Female
  Weight: 83 kg

DRUGS (11)
  1. CATAPRES [Concomitant]
     Active Substance: CLONIDINE HYDROCHLORIDE
  2. WARFARIN [Suspect]
     Active Substance: WARFARIN
     Indication: ATRIAL FIBRILLATION
     Dosage: DATES OF USE - CHRONIC?DOSE - 2.5 MG 1.25PM?FREQUENCY - QM-F + SUN?Q SATURDAY  PO
     Route: 048
  3. DITROPAN SL [Concomitant]
  4. NORVASC [Concomitant]
     Active Substance: AMLODIPINE BESYLATE
  5. LIPITOR [Concomitant]
     Active Substance: ATORVASTATIN CALCIUM
  6. VITAMIN B12 [Concomitant]
     Active Substance: CYANOCOBALAMIN
  7. SENOKO [Concomitant]
  8. PLAVIX [Suspect]
     Active Substance: CLOPIDOGREL BISULFATE
     Indication: TRANSIENT ISCHAEMIC ATTACK
     Dosage: DATES OF USE - CHRONIC?FREQUENCY - Q PM
     Route: 048
  9. TOPROL XL [Concomitant]
     Active Substance: METOPROLOL SUCCINATE
  10. THERAGRAN [Concomitant]
     Active Substance: VITAMINS
  11. TRICOR [Concomitant]
     Active Substance: FENOFIBRATE

REACTIONS (3)
  - Fall [None]
  - International normalised ratio increased [None]
  - Subdural haematoma [None]

NARRATIVE: CASE EVENT DATE: 20170412
